FAERS Safety Report 4334754-X (Version None)
Quarter: 2004Q2

REPORT INFORMATION
  Report Type: 
  Country: None (occurrence: None)
  Receive Date: 20040407
  Receipt Date: 20040407
  Transmission Date: 20050107
  Serious: Yes (Death)
  Sender: FDA-Public Use
  Company Number: None

PATIENT
  Age: 82 Year
  Sex: Female
  Weight: 56.246 kg

DRUGS (2)
  1. PROPULSID [Suspect]
     Indication: HIATUS HERNIA
     Dosage: 10 MG QID
     Dates: start: 19960708, end: 20030523
  2. PROPULSID [Suspect]
     Indication: IMPAIRED GASTRIC EMPTYING
     Dosage: 10 MG QID
     Dates: start: 19960708, end: 20030523

REACTIONS (2)
  - CHRONIC RESPIRATORY FAILURE [None]
  - EMPHYSEMA [None]
